FAERS Safety Report 23252823 (Version 1)
Quarter: 2023Q4

REPORT INFORMATION
  Report Type: Spontaneous
  Country: JP (occurrence: JP)
  Receive Date: 20231201
  Receipt Date: 20231201
  Transmission Date: 20240110
  Serious: Yes (Hospitalization)
  Sender: FDA-Public Use
  Company Number: JP-BAYER-2023A169272

PATIENT
  Age: 83 Year
  Sex: Male

DRUGS (1)
  1. VERICIGUAT HYDROCHLORIDE [Suspect]
     Active Substance: VERICIGUAT HYDROCHLORIDE
     Indication: Cardiac failure chronic
     Dosage: UNK

REACTIONS (1)
  - Cardiac failure chronic [Recovering/Resolving]

NARRATIVE: CASE EVENT DATE: 20231109
